FAERS Safety Report 24328860 (Version 1)
Quarter: 2024Q3

REPORT INFORMATION
  Report Type: Spontaneous
  Country: JP (occurrence: JP)
  Receive Date: 20240917
  Receipt Date: 20240917
  Transmission Date: 20241017
  Serious: Yes (Death, Other)
  Sender: GLAXOSMITHKLINE
  Company Number: JP-GSKJP-JP2024JPN112138AA

PATIENT

DRUGS (8)
  1. BENLYSTA [Suspect]
     Active Substance: BELIMUMAB
     Indication: Systemic lupus erythematosus
     Dosage: 200 MG/ WEEK
  2. BENLYSTA [Suspect]
     Active Substance: BELIMUMAB
     Indication: Myelitis
  3. CYCLOPHOSPHAMIDE [Concomitant]
     Active Substance: CYCLOPHOSPHAMIDE
     Indication: Systemic lupus erythematosus
     Dosage: 8.45 G
  4. CYCLOPHOSPHAMIDE [Concomitant]
     Active Substance: CYCLOPHOSPHAMIDE
     Indication: Myelitis
  5. PREDNISOLONE [Concomitant]
     Active Substance: PREDNISOLONE
     Indication: Systemic lupus erythematosus
     Dosage: 7.5 MG, QD
  6. PREDNISOLONE [Concomitant]
     Active Substance: PREDNISOLONE
     Indication: Myelitis
     Dosage: 60 MG, QD
  7. TACROLIMUS [Concomitant]
     Active Substance: TACROLIMUS
     Indication: Systemic lupus erythematosus
     Dosage: 2.5 MG, QD
  8. TACROLIMUS [Concomitant]
     Active Substance: TACROLIMUS
     Indication: Myelitis

REACTIONS (16)
  - Haemophagocytic lymphohistiocytosis [Fatal]
  - Diffuse large B-cell lymphoma [Unknown]
  - Depressed level of consciousness [Recovered/Resolved]
  - Systemic lupus erythematosus [Unknown]
  - Altered state of consciousness [Unknown]
  - Hemiplegia [Unknown]
  - Pancytopenia [Unknown]
  - Systemic candida [Unknown]
  - Cerebellar haemorrhage [Unknown]
  - Pneumonia [Unknown]
  - Arthralgia [Unknown]
  - Muscular weakness [Unknown]
  - Binocular eye movement disorder [Unknown]
  - Clonus [Unknown]
  - Pyrexia [Unknown]
  - Platelet count decreased [Unknown]
